FAERS Safety Report 5747279-1 (Version None)
Quarter: 2008Q2

REPORT INFORMATION
  Report Type: 
  Country: None (occurrence: None)
  Receive Date: 20080523
  Receipt Date: 20080515
  Transmission Date: 20081010
  Serious: Yes (Other)
  Sender: FDA-Public Use
  Company Number: GB-RANBAXY-2006RR-02165

PATIENT

DRUGS (6)
  1. AMOXICILLIN CAPSULES BP 500MG [Suspect]
     Indication: INFECTION
     Dosage: UNK
     Route: 048
     Dates: start: 20060401, end: 20060401
  2. PRAMIPEXOLE DIHYDROCHLORIDE [Interacting]
     Indication: PARKINSON'S DISEASE
     Dosage: 2.80 MG, UNK
     Route: 048
     Dates: end: 20060401
  3. SINEMET [Interacting]
     Indication: PARKINSON'S DISEASE
     Dosage: 4 DF, UNK
     Route: 048
     Dates: start: 20060101, end: 20060101
  4. QUININE SULPHATE [Concomitant]
     Indication: MUSCLE SPASMS
     Dosage: 300 MG, UNK
     Route: 048
  5. SERTRALINE [Concomitant]
     Indication: DEPRESSION
     Dosage: 100 MG, UNK
     Route: 048
     Dates: start: 20060201
  6. ROSUVASTATIN CALCIUM [Concomitant]
     Indication: HYPERCHOLESTEROLAEMIA
     Dosage: 10 MG, UNK
     Route: 048

REACTIONS (2)
  - ANAPHYLACTIC REACTION [None]
  - DRUG INTERACTION [None]
